APPROVED DRUG PRODUCT: PRINIVIL
Active Ingredient: LISINOPRIL
Strength: 40MG
Dosage Form/Route: TABLET;ORAL
Application: N019558 | Product #004
Applicant: MERCK RESEARCH LABORATORIES DIV MERCK CO INC
Approved: Oct 25, 1988 | RLD: No | RS: No | Type: DISCN